FAERS Safety Report 9508611 (Version 3)
Quarter: 2013Q4

REPORT INFORMATION
  Report Type: Spontaneous
  Country: US (occurrence: US)
  Receive Date: 20130909
  Receipt Date: 20131219
  Transmission Date: 20140711
  Serious: Yes (Hospitalization, Other)
  Sender: FDA-Public Use
  Company Number: US-BAXTER-2013BAX033743

PATIENT
  Age: 81 Year
  Sex: Female

DRUGS (5)
  1. DIANEAL LOW CALCIUM [Suspect]
     Indication: PERITONEAL DIALYSIS
     Route: 033
     Dates: start: 20130221
  2. DIANEAL LOW CALCIUM [Suspect]
     Route: 033
     Dates: start: 20130221
  3. DIANEAL LOW CALCIUM [Suspect]
     Indication: PERITONEAL DIALYSIS
     Route: 033
     Dates: start: 20120221
  4. DIANEAL LOW CALCIUM [Suspect]
     Route: 033
     Dates: start: 20130221
  5. GABAPENTIN [Suspect]
     Indication: DIABETIC NEUROPATHY

REACTIONS (8)
  - Diabetic vascular disorder [Not Recovered/Not Resolved]
  - Diabetic neuropathy [Not Recovered/Not Resolved]
  - Gastrointestinal ulcer haemorrhage [Recovered/Resolved]
  - Gastrointestinal haemorrhage [Recovered/Resolved]
  - Loss of consciousness [Recovered/Resolved]
  - Lethargy [Recovered/Resolved]
  - Condition aggravated [Recovering/Resolving]
  - Polyp [Recovered/Resolved]
